FAERS Safety Report 16084557 (Version 1)
Quarter: 2019Q1

REPORT INFORMATION
  Report Type: Report from Study
  Country: BR (occurrence: BR)
  Receive Date: 20190318
  Receipt Date: 20190318
  Transmission Date: 20190418
  Serious: Yes (Other)
  Sender: FDA-Public Use
  Company Number: BR-JNJFOC-20190313510

PATIENT
  Sex: Female

DRUGS (1)
  1. INFLIXIMAB, RECOMBINANT [Suspect]
     Active Substance: INFLIXIMAB
     Indication: PSORIASIS
     Route: 042
     Dates: start: 20150415

REACTIONS (6)
  - Endometriosis [Unknown]
  - Post procedural complication [Unknown]
  - Thyroid mass [Unknown]
  - Lymphoma [Unknown]
  - Surgery [Unknown]
  - Uterine leiomyoma [Unknown]
